FAERS Safety Report 15742775 (Version 2)
Quarter: 2023Q2

REPORT INFORMATION
  Report Type: Spontaneous
  Country: FR (occurrence: FR)
  Receive Date: 20181219
  Receipt Date: 20230407
  Transmission Date: 20230722
  Serious: Yes (Hospitalization, Other)
  Sender: FDA-Public Use
  Company Number: None

PATIENT
  Age: 59 Year
  Sex: Male

DRUGS (3)
  1. MESNA [Suspect]
     Active Substance: MESNA
     Indication: Lymphoma
     Dosage: 5000 MG/M2
     Route: 042
     Dates: start: 20181113, end: 20181114
  2. IFOSFAMIDE [Suspect]
     Active Substance: IFOSFAMIDE
     Indication: Lymphoma
     Dosage: 5000 MG/M2
     Route: 042
     Dates: start: 20181113, end: 20181114
  3. ONDANSETRON [Suspect]
     Active Substance: ONDANSETRON
     Indication: Prophylaxis of nausea and vomiting
     Dosage: UNK
     Route: 065
     Dates: start: 20181114, end: 20181114

REACTIONS (3)
  - Localised oedema [Recovered/Resolved]
  - Dyspnoea [Recovered/Resolved]
  - Anaphylactic reaction [Recovered/Resolved]

NARRATIVE: CASE EVENT DATE: 20181114
